FAERS Safety Report 7844183-X (Version None)
Quarter: 2011Q4

REPORT INFORMATION
  Report Type: 
  Country: None (occurrence: None)
  Receive Date: 20111025
  Receipt Date: 20111011
  Transmission Date: 20120403
  Serious: Yes (Other)
  Sender: FDA-Public Use
  Company Number: US-ELI_LILLY_AND_COMPANY-US201105005596

PATIENT
  Sex: Female
  Weight: 126 kg

DRUGS (4)
  1. VITAMIN D [Concomitant]
  2. FORTEO [Suspect]
     Dosage: 20 UG, QD
  3. MULTI-VITAMIN [Concomitant]
  4. FORTEO [Suspect]
     Indication: OSTEOPOROSIS
     Dosage: 20 UG, QD
     Route: 065
     Dates: start: 20110509, end: 20110512

REACTIONS (9)
  - MIGRAINE [None]
  - DIARRHOEA [None]
  - BREAST MASS [None]
  - HEADACHE [None]
  - BURNING SENSATION [None]
  - DRUG DOSE OMISSION [None]
  - MALAISE [None]
  - VOMITING [None]
  - NAUSEA [None]
